FAERS Safety Report 17712437 (Version 4)
Quarter: 2021Q1

REPORT INFORMATION
  Report Type: Spontaneous
  Country: US (occurrence: US)
  Receive Date: 20200427
  Receipt Date: 20210104
  Transmission Date: 20210419
  Serious: Yes (Other)
  Sender: FDA-Public Use
  Company Number: US-PFIZER INC-2020166583

PATIENT
  Age: 58 Year
  Sex: Female
  Weight: 81.65 kg

DRUGS (2)
  1. DEMEROL [Suspect]
     Active Substance: MEPERIDINE HYDROCHLORIDE
     Indication: BREAKTHROUGH PAIN
     Dosage: 150 MG, AS NEEDED ( SHE NEEDS 150MG SO SHE TAKES 5 OF THOSE)
     Dates: start: 20200413
  2. DEMEROL [Suspect]
     Active Substance: MEPERIDINE HYDROCHLORIDE
     Indication: PAIN

REACTIONS (5)
  - Anxiety [Unknown]
  - Pain [Unknown]
  - Suspected counterfeit product [Unknown]
  - Drug ineffective [Unknown]
  - Feeling abnormal [Unknown]
